FAERS Safety Report 7607757-7 (Version None)
Quarter: 2011Q3

REPORT INFORMATION
  Report Type: 
  Country: None (occurrence: None)
  Receive Date: 20110713
  Receipt Date: 20110531
  Transmission Date: 20111222
  Serious: Yes (Hospitalization, Other)
  Sender: FDA-Public Use
  Company Number: PHHY2011FR47981

PATIENT
  Sex: Female

DRUGS (2)
  1. CLASTOBAN [Suspect]
     Indication: METASTASES TO BONE
     Dosage: UNK UKN, UNK
     Dates: start: 20101008
  2. ZOMETA [Suspect]
     Indication: METASTASES TO BONE
     Dosage: 4 MG, QMO
     Dates: start: 20091001, end: 20101008

REACTIONS (5)
  - OSTEONECROSIS OF JAW [None]
  - BONE LESION [None]
  - TOOTHACHE [None]
  - GINGIVAL INFECTION [None]
  - OSTEITIS [None]
